FAERS Safety Report 17829549 (Version 1)
Quarter: 2020Q2

REPORT INFORMATION
  Report Type: Spontaneous
  Country: US (occurrence: US)
  Receive Date: 20200527
  Receipt Date: 20200527
  Transmission Date: 20200714
  Serious: Yes (Other)
  Sender: FDA-Public Use
  Company Number: US-HQ SPECIALTY-US-2020INT000064

PATIENT
  Sex: Female

DRUGS (3)
  1. GEMCITABINE. [Suspect]
     Active Substance: GEMCITABINE
     Indication: CERVIX CARCINOMA
     Dosage: 50, 75, 100, OR 125 MG/M2, WEEKLY
     Route: 042
  2. CISPLATIN. [Suspect]
     Active Substance: CISPLATIN
     Indication: CERVIX CARCINOMA
     Dosage: 40 MG/M2, WEEKLY
     Route: 042
  3. RADIOTHERAPY [Suspect]
     Active Substance: RADIATION THERAPY
     Indication: CERVIX CARCINOMA
     Dosage: 45.0-47.6 GY, 25-28 FRACTIONS TO PELVIS +/- PARA-AORTIC SIMULTANEOUS NODAL BOOST TO 53.2-59.4 GY
     Route: 050

REACTIONS (2)
  - Dyspnoea [Unknown]
  - Cough [Unknown]
